FAERS Safety Report 6618747-5 (Version None)
Quarter: 2010Q1

REPORT INFORMATION
  Report Type: 
  Country: None (occurrence: None)
  Receive Date: 20100305
  Receipt Date: 20100305
  Transmission Date: 20100710
  Serious: No
  Sender: FDA-Public Use
  Company Number: None

PATIENT
  Sex: Female
  Weight: 50.8029 kg

DRUGS (2)
  1. BONIVA [Suspect]
     Indication: OSTEOPENIA
     Dosage: 150 MG 1X/MO
     Dates: start: 20051104, end: 20091101
  2. BONIVA [Suspect]
     Indication: OSTEOPOROSIS
     Dosage: 150 MG 1X/MO
     Dates: start: 20051104, end: 20091101

REACTIONS (9)
  - ABDOMINAL PAIN UPPER [None]
  - ACNE [None]
  - DIARRHOEA [None]
  - FATIGUE [None]
  - FLATULENCE [None]
  - GASTROINTESTINAL DISORDER [None]
  - GINGIVAL BLEEDING [None]
  - NAUSEA [None]
  - SENSATION OF FOREIGN BODY [None]
